FAERS Safety Report 18129254 (Version 1)
Quarter: 2020Q3

REPORT INFORMATION
  Report Type: Spontaneous
  Country: US (occurrence: US)
  Receive Date: 20200809
  Receipt Date: 20200809
  Transmission Date: 20201103
  Serious: No
  Sender: FDA-Public Use
  Company Number: None

PATIENT
  Sex: Female
  Weight: 69.3 kg

DRUGS (3)
  1. ELURYNG [Suspect]
     Active Substance: ETHINYL ESTRADIOL\ETONOGESTREL
     Indication: CONTRACEPTION
     Dosage: ?          OTHER FREQUENCY:ONCE MONTHLY;?
     Route: 067
  2. ELURYNG [Suspect]
     Active Substance: ETHINYL ESTRADIOL\ETONOGESTREL
     Indication: PREMENSTRUAL SYNDROME
     Dosage: ?          OTHER FREQUENCY:ONCE MONTHLY;?
     Route: 067
  3. SERTRALINE 50MG [Concomitant]
     Active Substance: SERTRALINE HYDROCHLORIDE

REACTIONS (8)
  - Breast pain [None]
  - Headache [None]
  - Depression [None]
  - Breast tenderness [None]
  - Menstruation irregular [None]
  - Menstrual disorder [None]
  - Nausea [None]
  - Fatigue [None]
